FAERS Safety Report 15560777 (Version 17)
Quarter: 2020Q3

REPORT INFORMATION
  Report Type: Spontaneous
  Country: US (occurrence: US)
  Receive Date: 20181029
  Receipt Date: 20200709
  Transmission Date: 20201102
  Serious: Yes (Other)
  Sender: FDA-Public Use
  Company Number: US-PFIZER INC-2018436257

PATIENT
  Age: 66 Year
  Sex: Female

DRUGS (1)
  1. LYRICA [Suspect]
     Active Substance: PREGABALIN
     Indication: PAIN IN EXTREMITY
     Dosage: 100 MG, 4X/DAY
     Route: 048

REACTIONS (10)
  - Hypersensitivity [Unknown]
  - Contusion [Unknown]
  - Pain [Not Recovered/Not Resolved]
  - Fall [Unknown]
  - Nasopharyngitis [Unknown]
  - Hyperhidrosis [Unknown]
  - Diabetes mellitus [Unknown]
  - Dysphonia [Unknown]
  - Laryngitis [Unknown]
  - Headache [Unknown]
